FAERS Safety Report 8033999-5 (Version None)
Quarter: 2012Q1

REPORT INFORMATION
  Report Type: 
  Country: None (occurrence: None)
  Receive Date: 20120110
  Receipt Date: 20120105
  Transmission Date: 20120608
  Serious: Yes (Hospitalization)
  Sender: FDA-Public Use
  Company Number: US-B.I. PHARMACEUTICALS,INC./RIDGEFIELD-2011-BP-27183BP

PATIENT

DRUGS (2)
  1. PRADAXA [Suspect]
     Dosage: 150 MG
     Dates: start: 20110829, end: 20110914
  2. PRADAXA [Suspect]
     Indication: ATRIAL FIBRILLATION
     Dosage: 300 MG
     Route: 048
     Dates: start: 20110817, end: 20110829

REACTIONS (1)
  - RECTAL HAEMORRHAGE [None]
